FAERS Safety Report 6938919-X (Version None)
Quarter: 2010Q3

REPORT INFORMATION
  Report Type: 
  Country: None (occurrence: None)
  Receive Date: 20100824
  Receipt Date: 20100813
  Transmission Date: 20110219
  Serious: Yes (Hospitalization)
  Sender: FDA-Public Use
  Company Number: B0669856A

PATIENT
  Sex: Female

DRUGS (6)
  1. LAMICTAL [Suspect]
     Route: 048
     Dates: start: 20090717, end: 20090727
  2. PEPDINE [Suspect]
     Route: 048
     Dates: start: 20090716, end: 20090727
  3. BIPROFENID [Concomitant]
     Indication: MIGRAINE
     Route: 048
     Dates: start: 20060101
  4. MOTILIUM [Concomitant]
     Route: 048
     Dates: start: 20090716, end: 20090727
  5. RELPAX [Concomitant]
     Indication: MIGRAINE
     Route: 048
     Dates: start: 20090421
  6. HARMONET [Concomitant]
     Indication: CONTRACEPTION
     Route: 048

REACTIONS (30)
  - ALANINE AMINOTRANSFERASE INCREASED [None]
  - ASTHENIA [None]
  - AURICULAR SWELLING [None]
  - BRONCHIAL DISORDER [None]
  - BRONCHIECTASIS [None]
  - CHEILITIS [None]
  - CONJUNCTIVITIS [None]
  - DERMATITIS BULLOUS [None]
  - DYSGEUSIA [None]
  - DYSPHAGIA [None]
  - DYSPNOEA [None]
  - ERYTHEMA [None]
  - EYELID OEDEMA [None]
  - GENITAL EROSION [None]
  - GINGIVITIS [None]
  - LIVIDITY [None]
  - LYMPHADENOPATHY [None]
  - MALAISE [None]
  - MUCOSAL EROSION [None]
  - ODYNOPHAGIA [None]
  - OFF LABEL USE [None]
  - PHARYNGITIS [None]
  - PRURITUS [None]
  - RASH GENERALISED [None]
  - RASH PAPULAR [None]
  - SICCA SYNDROME [None]
  - SKIN EXFOLIATION [None]
  - SKIN TEST POSITIVE [None]
  - STEVENS-JOHNSON SYNDROME [None]
  - TOXIC SKIN ERUPTION [None]
